APPROVED DRUG PRODUCT: ARICEPT
Active Ingredient: DONEPEZIL HYDROCHLORIDE
Strength: 5MG/5ML
Dosage Form/Route: SOLUTION;ORAL
Application: N021719 | Product #001
Applicant: EISAI INC
Approved: Oct 18, 2004 | RLD: Yes | RS: No | Type: DISCN